FAERS Safety Report 4735584-7 (Version None)
Quarter: 2005Q3

REPORT INFORMATION
  Report Type: 
  Country: None (occurrence: None)
  Receive Date: 20050805
  Receipt Date: 20050713
  Transmission Date: 20060218
  Serious: Yes (Congenital Anomaly)
  Sender: FDA-Public Use
  Company Number: US-MERCK-0507USA01799B1

PATIENT
  Age: 0 Day
  Sex: Male

DRUGS (1)
  1. VIOXX [Suspect]
     Indication: PARTNER STRESS
     Dates: start: 20030101, end: 20030301

REACTIONS (1)
  - HYDRONEPHROSIS [None]
